FAERS Safety Report 8499299 (Version 9)
Quarter: 2013Q3

REPORT INFORMATION
  Report Type: Report from Study
  Country: CA (occurrence: CA)
  Receive Date: 20120409
  Receipt Date: 20130721
  Transmission Date: 20140515
  Serious: Yes (Other)
  Sender: FDA-Public Use
  Company Number: PHHY2012CA029093

PATIENT
  Age: 77 Year
  Sex: Female

DRUGS (10)
  1. ACLASTA [Suspect]
     Indication: OSTEOPOROSIS
     Dosage: 5 MG, YEARLY
     Route: 042
     Dates: start: 20110419
  2. ACLASTA [Suspect]
     Dosage: 5 MG, YEARLY
     Route: 042
     Dates: start: 20120528
  3. ATENOLOL [Concomitant]
     Indication: HYPERTENSION
     Dosage: 25 MG, QD
  4. ATENOLOL [Concomitant]
     Indication: HYPERADRENALISM
  5. CIPRALEX [Concomitant]
     Dosage: 10 MG, QD
  6. EZETROL [Concomitant]
     Dosage: 10 MG, QD
  7. ASA [Concomitant]
     Dosage: 81 MG, QD
  8. ATIVAN [Concomitant]
     Dosage: UNK UKN, PRN
  9. VENTOLIN [Concomitant]
     Indication: NASOPHARYNGITIS
     Dosage: UNK UKN, UNK
  10. OMNARIS [Concomitant]
     Dosage: UNK UKN, UNK

REACTIONS (12)
  - Pericardial effusion [Unknown]
  - Cardiomegaly [Unknown]
  - Diastolic dysfunction [Unknown]
  - Pneumonia [Unknown]
  - Blood pressure increased [Unknown]
  - Haematuria [Not Recovered/Not Resolved]
  - Urine albumin/creatinine ratio increased [Not Recovered/Not Resolved]
  - Microalbuminuria [Not Recovered/Not Resolved]
  - Calcium ionised increased [Unknown]
  - Viral infection [Unknown]
  - Bronchial hyperreactivity [Unknown]
  - Nasopharyngitis [Unknown]
